FAERS Safety Report 9625034 (Version 2)
Quarter: 2014Q1

REPORT INFORMATION
  Report Type: Spontaneous
  Country: US (occurrence: US)
  Receive Date: 20131016
  Receipt Date: 20140210
  Transmission Date: 20141002
  Serious: Yes (Hospitalization, Other)
  Sender: FDA-Public Use
  Company Number: US-AMGEN-USASP2013071431

PATIENT
  Age: 89 Year
  Sex: Female
  Weight: 56.69 kg

DRUGS (6)
  1. PROLIA [Suspect]
     Indication: OSTEOPOROSIS POSTMENOPAUSAL
     Dosage: 60 MG, UNK
     Route: 058
     Dates: start: 20130827
  2. ERGOCALCIFEROL [Concomitant]
     Dosage: 5000 UNIT, QMO
  3. LEVOTHYROXINE [Concomitant]
     Indication: HYPOTHYROIDISM
     Dosage: .015 MG, UNK
     Route: 048
     Dates: end: 201203
  4. AMLODIPINE [Concomitant]
     Indication: HYPERTENSION
     Dosage: 7.5 MG, UNK
     Route: 048
  5. LASIX                              /00032601/ [Concomitant]
     Indication: CARDIAC FAILURE CONGESTIVE
     Dosage: 80 MG, QD
     Route: 048
     Dates: end: 201203
  6. TOPROL [Concomitant]
     Indication: CORONARY ARTERY DISEASE
     Dosage: 50 MG, QD
     Route: 048

REACTIONS (4)
  - Loss of consciousness [Recovered/Resolved]
  - Syncope [Recovered/Resolved]
  - Hypocalcaemia [Recovered/Resolved]
  - Fall [Unknown]
